FAERS Safety Report 14922859 (Version 1)
Quarter: 2018Q2

REPORT INFORMATION
  Report Type: Spontaneous
  Country: CA (occurrence: US)
  Receive Date: 20180503
  Receipt Date: 20180503
  Transmission Date: 20180711
  Serious: Yes (Hospitalization)
  Sender: FDA-Public Use
  Company Number: None

PATIENT
  Age: 37 Year
  Sex: Female
  Weight: 72 kg

DRUGS (1)
  1. CISPLATIN. [Suspect]
     Active Substance: CISPLATIN
     Dates: end: 20180417

REACTIONS (5)
  - Chills [None]
  - Pyrexia [None]
  - Nausea [None]
  - Wound infection staphylococcal [None]
  - Headache [None]

NARRATIVE: CASE EVENT DATE: 20180419
